FAERS Safety Report 5484750-4 (Version None)
Quarter: 2007Q4

REPORT INFORMATION
  Report Type: 
  Country: None (occurrence: None)
  Receive Date: 20071012
  Receipt Date: 20071002
  Transmission Date: 20080405
  Serious: Yes (Other)
  Sender: FDA-Public Use
  Company Number: CA-PFIZER INC-2007083419

PATIENT
  Sex: Female

DRUGS (4)
  1. CHANTIX [Interacting]
  2. GABAPENTIN [Suspect]
     Indication: ANXIETY
  3. CYMBALTA [Interacting]
     Indication: DEPRESSION
  4. CLONAZEPAM [Concomitant]

REACTIONS (8)
  - ANXIETY [None]
  - DEPRESSION [None]
  - DRUG INEFFECTIVE [None]
  - DRUG INTERACTION [None]
  - INSOMNIA [None]
  - NIGHTMARE [None]
  - PANIC DISORDER [None]
  - STRESS [None]
